FAERS Safety Report 12228089 (Version 1)
Quarter: 2016Q1

REPORT INFORMATION
  Report Type: Spontaneous
  Country: US (occurrence: None)
  Receive Date: 20160330
  Receipt Date: 20160330
  Transmission Date: 20160526
  Serious: Yes (Other)
  Sender: FDA-Public Use
  Company Number: None

PATIENT
  Age: 1 Year
  Sex: Male
  Weight: 10.43 kg

DRUGS (3)
  1. TYLENOL [Concomitant]
     Active Substance: ACETAMINOPHEN
  2. CEFDINIR. [Suspect]
     Active Substance: CEFDINIR
     Indication: OTITIS MEDIA
     Route: 048
     Dates: start: 20160328, end: 20160329
  3. ADVIL [Concomitant]
     Active Substance: IBUPROFEN

REACTIONS (3)
  - Faeces discoloured [None]
  - Epistaxis [None]
  - Diarrhoea [None]

NARRATIVE: CASE EVENT DATE: 20160329
